FAERS Safety Report 5773596-5 (Version None)
Quarter: 2008Q2

REPORT INFORMATION
  Report Type: 
  Country: None (occurrence: None)
  Receive Date: 20080616
  Receipt Date: 20080605
  Transmission Date: 20081010
  Serious: Yes (Other)
  Sender: FDA-Public Use
  Company Number: AR-ROCHE-568911

PATIENT
  Age: 37 Year
  Sex: Male
  Weight: 55 kg

DRUGS (1)
  1. XENICAL [Suspect]
     Indication: HYPERLIPIDAEMIA
     Dosage: DOSAGE REGIMEN: ONCE DAILY
     Route: 048
     Dates: start: 20080422

REACTIONS (3)
  - BACK PAIN [None]
  - BLOOD CREATINE PHOSPHOKINASE INCREASED [None]
  - MUSCLE SPASMS [None]
